FAERS Safety Report 8409919-8 (Version None)
Quarter: 2012Q2

REPORT INFORMATION
  Report Type: 
  Country: None (occurrence: None)
  Receive Date: 20120605
  Receipt Date: 20120524
  Transmission Date: 20120825
  Serious: Yes (Other)
  Sender: FDA-Public Use
  Company Number: US-JNJFOC-20120520437

PATIENT
  Sex: Female
  Weight: 81.65 kg

DRUGS (2)
  1. UNKNOWN MEDICATION [Concomitant]
     Route: 065
  2. REMICADE [Suspect]
     Indication: ARTHRITIS
     Route: 042
     Dates: start: 20020101

REACTIONS (3)
  - WEIGHT FLUCTUATION [None]
  - CARDIAC DISORDER [None]
  - PAIN [None]
